FAERS Safety Report 24692550 (Version 1)
Quarter: 2024Q4

REPORT INFORMATION
  Report Type: Spontaneous
  Country: US (occurrence: US)
  Receive Date: 20241203
  Receipt Date: 20241203
  Transmission Date: 20250115
  Serious: No
  Sender: SEPTODONT
  Company Number: US-SEPTODONT-2024018575

PATIENT
  Age: 65 Year
  Sex: Female

DRUGS (2)
  1. EPINEPHRINE BITARTRATE\LIDOCAINE HYDROCHLORIDE [Suspect]
     Active Substance: EPINEPHRINE BITARTRATE\LIDOCAINE HYDROCHLORIDE
     Indication: Dental local anaesthesia
     Dosage: 1ST CART. DISCARDED. THEN 2 CARTRIDGES SUBSEQUENTLY INJECTED.
     Route: 004
     Dates: start: 20240423, end: 20240423
  2. 30Ga Needle [Concomitant]
     Dates: start: 20240423, end: 20240423

REACTIONS (2)
  - Device delivery system issue [Unknown]
  - No adverse event [Unknown]

NARRATIVE: CASE EVENT DATE: 20240423
